FAERS Safety Report 24602619 (Version 3)
Quarter: 2025Q1

REPORT INFORMATION
  Report Type: Spontaneous
  Country: PL (occurrence: PL)
  Receive Date: 20241111
  Receipt Date: 20250205
  Transmission Date: 20250408
  Serious: Yes (Hospitalization, Other)
  Sender: TAKEDA
  Company Number: PL-LUNDBECK-DKLU4000967

PATIENT
  Age: 31 Year
  Sex: Male

DRUGS (7)
  1. BRINTELLIX [Suspect]
     Active Substance: VORTIOXETINE HYDROBROMIDE
     Indication: Anxiety disorder
     Dosage: UNK, QD
     Dates: start: 202311
  2. BRINTELLIX [Suspect]
     Active Substance: VORTIOXETINE HYDROBROMIDE
     Indication: Depression
  3. BRINTELLIX [Suspect]
     Active Substance: VORTIOXETINE HYDROBROMIDE
  4. BRINTELLIX [Suspect]
     Active Substance: VORTIOXETINE HYDROBROMIDE
  5. ACETAMINOPHEN\ASCORBIC ACID\CODEINE [Suspect]
     Active Substance: ACETAMINOPHEN\ASCORBIC ACID\CODEINE
     Indication: Nasopharyngitis
  6. ACETAMINOPHEN\ASCORBIC ACID\CODEINE [Suspect]
     Active Substance: ACETAMINOPHEN\ASCORBIC ACID\CODEINE
  7. ACETAMINOPHEN\ASCORBIC ACID\CODEINE [Suspect]
     Active Substance: ACETAMINOPHEN\ASCORBIC ACID\CODEINE

REACTIONS (8)
  - Pancreatic failure [Recovering/Resolving]
  - Ileus paralytic [Recovering/Resolving]
  - Impaired gastric emptying [Recovering/Resolving]
  - Pancreatitis acute [Recovered/Resolved with Sequelae]
  - Gastrointestinal disorder [Recovering/Resolving]
  - Wrong technique in product usage process [Unknown]
  - Epistaxis [Unknown]
  - Nausea [Unknown]

NARRATIVE: CASE EVENT DATE: 20240418
